FAERS Safety Report 4775702-8 (Version None)
Quarter: 2005Q3

REPORT INFORMATION
  Report Type: 
  Country: None (occurrence: None)
  Receive Date: 20050921
  Receipt Date: 20050916
  Transmission Date: 20060218
  Serious: Yes (Other)
  Sender: FDA-Public Use
  Company Number: 005673

PATIENT
  Age: 74 Year
  Sex: Female

DRUGS (4)
  1. MEDROXYPROGESTERONE [Suspect]
     Dosage: ORAL
     Route: 048
     Dates: start: 19970101, end: 20040101
  2. PROVERA [Suspect]
     Dosage: ORAL
     Route: 048
     Dates: start: 19970101, end: 20040101
  3. ESTRACE [Suspect]
     Dosage: ORAL
     Route: 048
     Dates: start: 19970101, end: 20040101
  4. ESTRADIOL [Suspect]
     Dosage: ORAL
     Route: 048
     Dates: start: 19970101, end: 20040101

REACTIONS (4)
  - BREAST CANCER FEMALE [None]
  - BREAST CANCER IN SITU [None]
  - OESTROGEN RECEPTOR ASSAY POSITIVE [None]
  - PROGESTERONE RECEPTOR ASSAY POSITIVE [None]
